FAERS Safety Report 6911077-3 (Version None)
Quarter: 2010Q3

REPORT INFORMATION
  Report Type: 
  Country: None (occurrence: None)
  Receive Date: 20100806
  Receipt Date: 20100729
  Transmission Date: 20110219
  Serious: Yes (Other)
  Sender: FDA-Public Use
  Company Number: US-AMGEN-QUU393038

PATIENT
  Sex: Male

DRUGS (5)
  1. ENBREL [Suspect]
     Indication: PSORIASIS
     Route: 058
     Dates: start: 20031201, end: 20100216
  2. UNSPECIFIED MEDICATION [Concomitant]
     Dates: start: 20090206
  3. METHOTREXATE [Concomitant]
     Dates: start: 20001212, end: 20040106
  4. DIFLORASONE DIACETATE [Concomitant]
     Dates: start: 19990629, end: 20090209
  5. LAC-HYDRIN [Concomitant]
     Dates: start: 20070719, end: 20100212

REACTIONS (5)
  - HYPERTENSION [None]
  - NIGHT SWEATS [None]
  - PSORIASIS [None]
  - PYREXIA [None]
  - TUBERCULIN TEST POSITIVE [None]
